FAERS Safety Report 16993383 (Version 1)
Quarter: 2019Q4

REPORT INFORMATION
  Report Type: Spontaneous
  Country: FR (occurrence: FR)
  Receive Date: 20191105
  Receipt Date: 20191105
  Transmission Date: 20200122
  Serious: Yes (Hospitalization)
  Sender: FDA-Public Use
  Company Number: FR-ACCORD-160001

PATIENT
  Age: 71 Year
  Sex: Male
  Weight: 86 kg

DRUGS (10)
  1. ALLOPURINOL. [Concomitant]
     Active Substance: ALLOPURINOL
  2. KARDEGIC [Suspect]
     Active Substance: ASPIRIN DL-LYSINE
     Indication: MYOCARDIAL ISCHAEMIA
     Dosage: (75 MG)
     Route: 048
     Dates: end: 20180409
  3. TAHOR [Concomitant]
     Active Substance: ATORVASTATIN CALCIUM
  4. LEVEMIR [Concomitant]
     Active Substance: INSULIN DETEMIR
  5. FUROSEMIDE. [Suspect]
     Active Substance: FUROSEMIDE
     Indication: HYPERTENSION
     Route: 048
  6. MOPRAL [Concomitant]
     Active Substance: OMEPRAZOLE
  7. VALSARTAN. [Suspect]
     Active Substance: VALSARTAN
     Indication: HYPERTENSION
     Route: 048
     Dates: end: 20180406
  8. APIDRA [Concomitant]
     Active Substance: INSULIN GLULISINE
  9. XARELTO [Suspect]
     Active Substance: RIVAROXABAN
     Indication: ATRIAL FIBRILLATION
     Dosage: (XARELTO 15 MG)
     Route: 048
     Dates: end: 20180409
  10. CARDENSIEL [Concomitant]
     Active Substance: BISOPROLOL FUMARATE

REACTIONS (4)
  - Diarrhoea haemorrhagic [Recovered/Resolved]
  - Anaemia [Recovered/Resolved]
  - Acute kidney injury [Recovered/Resolved]
  - Epistaxis [Recovered/Resolved]

NARRATIVE: CASE EVENT DATE: 201803
